FAERS Safety Report 13927617 (Version 6)
Quarter: 2017Q4

REPORT INFORMATION
  Report Type: Report from Study
  Country: TR (occurrence: TR)
  Receive Date: 20170831
  Receipt Date: 20171013
  Transmission Date: 20180320
  Serious: Yes (Other)
  Sender: FDA-Public Use
  Company Number: TR-JAZZ-2017-TR-011333

PATIENT
  Age: 24 Year
  Sex: Female
  Weight: 69.84 kg

DRUGS (5)
  1. XYREM [Suspect]
     Active Substance: SODIUM OXYBATE
     Dosage: 6000 MG, (DAILY DOSE)
     Route: 048
     Dates: start: 201708
  2. LUSTRAL [Concomitant]
     Active Substance: SERTRALINE HYDROCHLORIDE
  3. MODIODAL [Concomitant]
     Active Substance: MODAFINIL
  4. XYREM [Suspect]
     Active Substance: SODIUM OXYBATE
     Indication: CATAPLEXY
     Dosage: 9 G, (DAILY DOSE)
     Route: 048
     Dates: start: 201708, end: 201708
  5. XYREM [Suspect]
     Active Substance: SODIUM OXYBATE
     Indication: NARCOLEPSY
     Dosage: 4500 MG, QD
     Route: 048
     Dates: start: 20170801, end: 20170801

REACTIONS (7)
  - Hypoaesthesia [Unknown]
  - Enuresis [Unknown]
  - Headache [Unknown]
  - Somnolence [Unknown]
  - Angina pectoris [Recovering/Resolving]
  - Rash [Recovering/Resolving]
  - Cataplexy [Unknown]

NARRATIVE: CASE EVENT DATE: 2017
